FAERS Safety Report 11681453 (Version 1)
Quarter: 2015Q4

REPORT INFORMATION
  Report Type: Spontaneous
  Country: CA (occurrence: CA)
  Receive Date: 20151029
  Receipt Date: 20151029
  Transmission Date: 20160304
  Serious: Yes (Other)
  Sender: FDA-Public Use
  Company Number: CA-009507513-1510CAN010130

PATIENT
  Age: 42 Year
  Sex: Female

DRUGS (1)
  1. TEMODAL [Suspect]
     Active Substance: TEMOZOLOMIDE
     Indication: OLIGOASTROCYTOMA
     Dosage: UNK, UNKNOWN
     Route: 065
     Dates: start: 20050401

REACTIONS (2)
  - Oligoastrocytoma [Unknown]
  - Off label use [Unknown]

NARRATIVE: CASE EVENT DATE: 20050401
